FAERS Safety Report 9345499 (Version 1)
Quarter: 2013Q2

REPORT INFORMATION
  Report Type: Spontaneous
  Country: GB (occurrence: GB)
  Receive Date: 20130613
  Receipt Date: 20130613
  Transmission Date: 20140414
  Serious: Yes (Death, Other)
  Sender: FDA-Public Use
  Company Number: GB-JNJFOC-20130523111

PATIENT
  Sex: 0

DRUGS (10)
  1. ABCIXIMAB [Suspect]
     Indication: PERCUTANEOUS CORONARY INTERVENTION
     Route: 042
  2. ABCIXIMAB [Suspect]
     Indication: ACUTE MYOCARDIAL INFARCTION
     Route: 042
  3. HEPARIN [Suspect]
     Indication: PERCUTANEOUS CORONARY INTERVENTION
     Route: 065
  4. HEPARIN [Suspect]
     Indication: ACUTE MYOCARDIAL INFARCTION
     Route: 065
  5. ASPIRIN [Concomitant]
     Indication: PREMEDICATION
     Route: 065
  6. ASPIRIN [Concomitant]
     Indication: PREMEDICATION
     Dosage: 75 MG DAILY THEREAFTER
     Route: 065
  7. CLOPIDOGREL [Concomitant]
     Indication: PREMEDICATION
     Route: 065
  8. CLOPIDOGREL [Concomitant]
     Indication: PREMEDICATION
     Dosage: PRIOR TO EMERGENCY CARDIAC CATHETERISATION FOLLOWED BY DAILY MAINTENANCE DOSE 75 MG FOR 12 MONTHS
     Route: 065
  9. PRASUGREL [Concomitant]
     Indication: PREMEDICATION
     Route: 065
  10. PRASUGREL [Concomitant]
     Indication: PREMEDICATION
     Dosage: PRIOR TO EMERGENCY CARDIAC CATHETERISATION FOLLOWED BY PRASUGREL 10 MG FOR 12 MONTHS.
     Route: 065

REACTIONS (7)
  - Death [Fatal]
  - Cardiac death [Fatal]
  - Vascular operation [Unknown]
  - Infarction [Unknown]
  - Haemorrhage [Unknown]
  - Thrombosis in device [Unknown]
  - Thrombosis in device [Unknown]
